FAERS Safety Report 15940998 (Version 14)
Quarter: 2020Q1

REPORT INFORMATION
  Report Type: Spontaneous
  Country: US (occurrence: US)
  Receive Date: 20190208
  Receipt Date: 20200318
  Transmission Date: 20200409
  Serious: Yes (Hospitalization)
  Sender: FDA-Public Use
  Company Number: US-BIOGEN-2019BI00692101

PATIENT
  Age: 72 Year
  Sex: Male

DRUGS (4)
  1. TYSABRI [Suspect]
     Active Substance: NATALIZUMAB
     Dosage: INFUSED OVER 1 HOUR
     Route: 042
     Dates: end: 201906
  2. TYSABRI [Suspect]
     Active Substance: NATALIZUMAB
     Route: 065
     Dates: end: 20191030
  3. AMIODARONE [Suspect]
     Active Substance: AMIODARONE
     Indication: CARDIAC DISORDER
     Route: 065
  4. TYSABRI [Suspect]
     Active Substance: NATALIZUMAB
     Indication: MULTIPLE SCLEROSIS
     Route: 050
     Dates: start: 20181210, end: 20190329

REACTIONS (15)
  - Decubitus ulcer [Recovered/Resolved]
  - Irritability [Unknown]
  - Asthenia [Unknown]
  - Platelet count decreased [Unknown]
  - Multiple sclerosis relapse [Unknown]
  - Lymphocyte count increased [Unknown]
  - Faecaloma [Recovered/Resolved]
  - Volvulus [Unknown]
  - Pneumonia [Unknown]
  - Infection [Unknown]
  - Crohn^s disease [Not Recovered/Not Resolved]
  - Malignant melanoma [Unknown]
  - Mobility decreased [Unknown]
  - Abdominal adhesions [Unknown]
  - Lymphocyte count decreased [Recovered/Resolved]

NARRATIVE: CASE EVENT DATE: 20181230
